FAERS Safety Report 4855352-5 (Version None)
Quarter: 2005Q4

REPORT INFORMATION
  Report Type: 
  Country: None (occurrence: None)
  Receive Date: 20051125
  Receipt Date: 20050629
  Transmission Date: 20060501
  Serious: Yes (Hospitalization)
  Sender: FDA-Public Use
  Company Number: US-JNJFOC-20050700240

PATIENT
  Age: 52 Year
  Sex: Female

DRUGS (8)
  1. LEVAQUIN [Suspect]
     Indication: PNEUMONIA
     Dosage: 500 MG, ORAL
     Route: 048
     Dates: start: 20041103
  2. LEVAQUIN [Suspect]
     Indication: KIDNEY INFECTION
     Dosage: 500 MG, INTRAVENOUS
     Route: 042
     Dates: start: 20041210, end: 20041210
  3. PREMARIN [Concomitant]
  4. TRAZODONE (TRAZODONE) TABLETS [Concomitant]
  5. PRILOSEC [Concomitant]
  6. ACCOLATE [Concomitant]
  7. PREDNISONE [Concomitant]
  8. PROCARDIA [Concomitant]

REACTIONS (6)
  - ARTHRALGIA [None]
  - CONVULSION [None]
  - DEPRESSION [None]
  - HEADACHE [None]
  - NAUSEA [None]
  - WEIGHT DECREASED [None]
